FAERS Safety Report 7098209-4 (Version None)
Quarter: 2010Q4

REPORT INFORMATION
  Report Type: 
  Country: None (occurrence: None)
  Receive Date: 20101104
  Receipt Date: 20101029
  Transmission Date: 20110411
  Serious: Yes (Life-Threatening, Other)
  Sender: FDA-Public Use
  Company Number: 2010US003521

PATIENT
  Age: 71 Year
  Sex: Male

DRUGS (11)
  1. AMBISOME [Suspect]
     Dosage: 100 MG, UID/QD, IV NOS, 200 MG, UID/QD, IV NOS
     Route: 042
     Dates: start: 20100727, end: 20100811
  2. AMBISOME [Suspect]
     Dosage: 100 MG, UID/QD, IV NOS, 200 MG, UID/QD, IV NOS
     Route: 042
     Dates: start: 20100820, end: 20100821
  3. VFEND [Concomitant]
  4. COLDRIN (CLOFEDANOL HYDROCHLORIDE) [Concomitant]
  5. AGENTS FOR PEPTIC ULCER [Concomitant]
  6. FAMOTIDINE [Concomitant]
  7. HOKUNALIN (TULOBUTEROL HYDROCHLORIDE) [Concomitant]
  8. LENDORMIN DAINIPPO (BROTIZOLAM) [Concomitant]
  9. ADONA (CARBAZOCHROME SODIUM SULFONATE) [Concomitant]
  10. TRANSAMIN (TRANEXAMIC ACID) [Concomitant]
  11. DOGMATYL (SULPIRIDE) [Concomitant]

REACTIONS (9)
  - BLOOD CHLORIDE DECREASED [None]
  - BLOOD CREATINE PHOSPHOKINASE INCREASED [None]
  - BLOOD SODIUM DECREASED [None]
  - HYPOKALAEMIA [None]
  - LONG QT SYNDROME [None]
  - LOSS OF CONSCIOUSNESS [None]
  - MALNUTRITION [None]
  - STRESS CARDIOMYOPATHY [None]
  - VENTRICULAR FIBRILLATION [None]
